FAERS Safety Report 4982975-5 (Version None)
Quarter: 2006Q2

REPORT INFORMATION
  Report Type: 
  Country: None (occurrence: None)
  Receive Date: 20060426
  Receipt Date: 20060417
  Transmission Date: 20061013
  Serious: Yes (Other)
  Sender: FDA-Public Use
  Company Number: US-JNJFOC-20060404022

PATIENT
  Sex: Male
  Weight: 113.4 kg

DRUGS (7)
  1. REMICADE [Suspect]
     Route: 042
  2. REMICADE [Suspect]
     Route: 042
  3. REMICADE [Suspect]
     Indication: CROHN'S DISEASE
     Dosage: 2 INFUSIONS ON UNKNOWN DATES
     Route: 042
  4. ASACOL [Concomitant]
     Indication: CROHN'S DISEASE
  5. PREDNISONE [Concomitant]
     Indication: CROHN'S DISEASE
  6. VYTORIN [Concomitant]
  7. ALLEGRA [Concomitant]

REACTIONS (3)
  - ARTHROPATHY [None]
  - INCREASED TENDENCY TO BRUISE [None]
  - PARAESTHESIA [None]
